FAERS Safety Report 23797397 (Version 1)
Quarter: 2024Q2

REPORT INFORMATION
  Report Type: Spontaneous
  Country: JP (occurrence: JP)
  Receive Date: 20240430
  Receipt Date: 20240430
  Transmission Date: 20240715
  Serious: Yes (Other)
  Sender: FDA-Public Use
  Company Number: JP-MSD-M2023-39145

PATIENT
  Age: 6 Decade
  Sex: Female

DRUGS (1)
  1. KEYTRUDA [Suspect]
     Active Substance: PEMBROLIZUMAB
     Indication: Triple negative breast cancer
     Dosage: 200 MILLIGRAM, Q3W
     Route: 041
     Dates: start: 20230828

REACTIONS (5)
  - Tumour pseudoprogression [Recovering/Resolving]
  - Swelling [Unknown]
  - Erythema [Unknown]
  - Feeling hot [Unknown]
  - Pain [Unknown]

NARRATIVE: CASE EVENT DATE: 20230901
